FAERS Safety Report 13831055 (Version 1)
Quarter: 2017Q3

REPORT INFORMATION
  Report Type: Spontaneous
  Country: DE (occurrence: DE)
  Receive Date: 20170803
  Receipt Date: 20170803
  Transmission Date: 20171127
  Serious: Yes (Other)
  Sender: FDA-Public Use
  Company Number: DE-SUN PHARMACEUTICAL INDUSTRIES LTD-2017RR-146594

PATIENT
  Sex: Female
  Weight: 95 kg

DRUGS (2)
  1. MELATONIN 3 [Suspect]
     Active Substance: MELATONIN
     Indication: PRODUCT USED FOR UNKNOWN INDICATION
     Dosage: 60 TABLETS
     Route: 048
  2. OLANZAPIN BASICS 5 MG TABLETTEN [Suspect]
     Active Substance: OLANZAPINE
     Indication: PRODUCT USED FOR UNKNOWN INDICATION
     Dosage: 21 TABLETS
     Route: 048

REACTIONS (6)
  - Hypotension [Recovering/Resolving]
  - Sinus tachycardia [Recovering/Resolving]
  - Condition aggravated [Unknown]
  - Depression [None]
  - Suicidal ideation [Unknown]
  - Dysarthria [Unknown]
